FAERS Safety Report 9351883 (Version 1)
Quarter: 2013Q2

REPORT INFORMATION
  Report Type: Report from Study
  Country: GB (occurrence: GB)
  Receive Date: 20130617
  Receipt Date: 20130617
  Transmission Date: 20140414
  Serious: Yes (Other)
  Sender: FDA-Public Use
  Company Number: GB-JNJFOC-20130605320

PATIENT
  Age: 65 Year
  Sex: Female
  Weight: 71 kg

DRUGS (12)
  1. USTEKINUMAB [Suspect]
     Indication: PSORIASIS
     Route: 058
     Dates: start: 20100309
  2. AMLODIPINE [Concomitant]
     Dates: start: 20081101
  3. BENDROFLUMETHIAZIDE [Concomitant]
     Dates: start: 20081101
  4. BETNOVATE [Concomitant]
     Dates: start: 20080201
  5. DOVOBET [Concomitant]
     Dates: start: 20040401
  6. IBUPROFEN [Concomitant]
     Dates: start: 20081101
  7. EPADERM [Concomitant]
     Dates: start: 20060327
  8. ASPIRIN [Concomitant]
     Dates: start: 20100801
  9. CALCICHEW D3 [Concomitant]
     Dates: start: 20110501
  10. TRAMADOL [Concomitant]
     Dates: start: 20110201
  11. SANDOCAL 1000 [Concomitant]
     Dates: start: 20121001
  12. DIAZEPAM [Concomitant]
     Dates: start: 20130101

REACTIONS (1)
  - Malignant melanoma [Not Recovered/Not Resolved]
